FAERS Safety Report 20618611 (Version 1)
Quarter: 2022Q1

REPORT INFORMATION
  Report Type: Spontaneous
  Country: CA (occurrence: CA)
  Receive Date: 20220322
  Receipt Date: 20220322
  Transmission Date: 20220423
  Serious: Yes (Death, Hospitalization, Other)
  Sender: FDA-Public Use
  Company Number: CA-AUROBINDO-AUR-APL-2022-008409

PATIENT
  Age: 36 Year
  Sex: Female

DRUGS (2)
  1. PAROXETINE [Suspect]
     Active Substance: PAROXETINE
     Indication: Social anxiety disorder
     Dosage: UNK
     Route: 065
  2. ATIVAN [Suspect]
     Active Substance: LORAZEPAM
     Indication: Social anxiety disorder
     Dosage: UNK
     Route: 065

REACTIONS (9)
  - Abdominal injury [Fatal]
  - Anxiety [Fatal]
  - Death [Fatal]
  - Insomnia [Fatal]
  - Mental disorder [Fatal]
  - Pelvic fracture [Fatal]
  - Drug dependence [Fatal]
  - Road traffic accident [Fatal]
  - Intentional product misuse [Fatal]
